FAERS Safety Report 25043513 (Version 1)
Quarter: 2025Q1

REPORT INFORMATION
  Report Type: Spontaneous
  Country: GR (occurrence: GR)
  Receive Date: 20250306
  Receipt Date: 20250306
  Transmission Date: 20250409
  Serious: Yes (Other)
  Sender: STRIDES
  Company Number: GR-STRIDES ARCOLAB LIMITED-2025SP002759

PATIENT
  Age: 6 Year
  Sex: Male

DRUGS (6)
  1. HYDROCORTISONE [Suspect]
     Active Substance: HYDROCORTISONE
     Indication: Adrenoleukodystrophy
     Route: 065
  2. HYDROCORTISONE [Suspect]
     Active Substance: HYDROCORTISONE
     Indication: X-linked chromosomal disorder
  3. FLUDROCORTISONE [Suspect]
     Active Substance: FLUDROCORTISONE
     Indication: Adrenoleukodystrophy
     Route: 065
  4. FLUDROCORTISONE [Suspect]
     Active Substance: FLUDROCORTISONE
     Indication: X-linked chromosomal disorder
  5. LERIGLITAZONE [Suspect]
     Active Substance: LERIGLITAZONE
     Indication: Adrenoleukodystrophy
     Route: 065
  6. LERIGLITAZONE [Suspect]
     Active Substance: LERIGLITAZONE
     Indication: X-linked chromosomal disorder

REACTIONS (3)
  - Blood corticotrophin increased [Unknown]
  - Condition aggravated [Unknown]
  - Drug ineffective for unapproved indication [Unknown]
